FAERS Safety Report 8764383 (Version 2)
Quarter: 2013Q4

REPORT INFORMATION
  Report Type: Spontaneous
  Country: FR (occurrence: FR)
  Receive Date: 20120831
  Receipt Date: 20131031
  Transmission Date: 20140711
  Serious: Yes (Hospitalization, Disabling)
  Sender: FDA-Public Use
  Company Number: FR-009507513-1208FRA011285

PATIENT
  Age: 73 Year
  Sex: Female

DRUGS (8)
  1. XELEVIA [Suspect]
     Dosage: 100 MG, QD
     Route: 048
     Dates: start: 20110413, end: 20110810
  2. CRESTOR [Suspect]
     Dosage: 5 MG, QD
     Route: 048
     Dates: start: 20101018, end: 20110810
  3. DIAMICRON [Concomitant]
     Dosage: 30 MG, QD
     Route: 048
     Dates: start: 20111018, end: 20120412
  4. DIAMICRON [Concomitant]
     Dosage: UNK MG, UNK
     Route: 048
     Dates: start: 20120413
  5. TERCIAN [Concomitant]
     Dosage: 20 DF, UNK
     Route: 048
  6. HAVLANE [Concomitant]
     Dosage: 1 DF, QD
     Route: 048
  7. XANAX [Concomitant]
     Dosage: 0.5 MG, TID
     Route: 048
  8. PROZAC [Concomitant]
     Dosage: UNK
     Route: 048
     Dates: start: 20110309

REACTIONS (2)
  - Myalgia [Recovering/Resolving]
  - Arthropathy [Recovering/Resolving]
